FAERS Safety Report 6734600-0 (Version None)
Quarter: 2010Q2

REPORT INFORMATION
  Report Type: 
  Country: None (occurrence: None)
  Receive Date: 20100519
  Receipt Date: 20100506
  Transmission Date: 20101027
  Serious: Yes (Hospitalization)
  Sender: FDA-Public Use
  Company Number: 2010AM002026

PATIENT
  Age: 51 Year
  Sex: Female
  Weight: 97.5234 kg

DRUGS (7)
  1. SYMLIN [Suspect]
     Indication: TYPE 2 DIABETES MELLITUS
     Dosage: 60 MCG;TID;SC
     Route: 058
     Dates: start: 20100401, end: 20100414
  2. LANTUS [Concomitant]
  3. HUMALOG R [Concomitant]
  4. ACTOS/METFORMIN [Concomitant]
  5. JANUVIA [Concomitant]
  6. TRAZODONE HCL [Concomitant]
  7. PREV MEDS [Concomitant]

REACTIONS (2)
  - BLOOD GLUCOSE INCREASED [None]
  - TREATMENT NONCOMPLIANCE [None]
